FAERS Safety Report 26038824 (Version 1)
Quarter: 2025Q4

REPORT INFORMATION
  Report Type: Other
  Country: US (occurrence: US)
  Receive Date: 20251113
  Receipt Date: 20251113
  Transmission Date: 20260117
  Serious: Yes (Hospitalization)
  Sender: TRAVERE THERAPEUTICS
  Company Number: US-TRAVERE-2025TVT02122

PATIENT
  Sex: Female

DRUGS (1)
  1. FILSPARI [Suspect]
     Active Substance: SPARSENTAN
     Indication: IgA nephropathy
     Route: 048
     Dates: start: 202509

REACTIONS (1)
  - Hospitalisation [Unknown]
